FAERS Safety Report 26154050 (Version 2)
Quarter: 2025Q4

REPORT INFORMATION
  Report Type: Report from Study
  Country: CA (occurrence: CA)
  Receive Date: 20251215
  Receipt Date: 20251217
  Transmission Date: 20260118
  Serious: Yes (Death, Hospitalization)
  Sender: JOHNSON AND JOHNSON
  Company Number: CA-JNJFOC-20250838123

PATIENT
  Age: 77 Year
  Sex: Female

DRUGS (2)
  1. REMICADE [Suspect]
     Active Substance: INFLIXIMAB
     Indication: Scleritis
     Route: 041
     Dates: start: 20190718
  2. REMICADE [Suspect]
     Active Substance: INFLIXIMAB
     Indication: Ulcerative keratitis
     Route: 041

REACTIONS (8)
  - Urosepsis [Fatal]
  - Urinary tract infection [Recovering/Resolving]
  - Weight increased [Unknown]
  - Dyspnoea [Unknown]
  - Renal disorder [Unknown]
  - General physical health deterioration [Unknown]
  - Fluid retention [Unknown]
  - Mood swings [Unknown]

NARRATIVE: CASE EVENT DATE: 20250815
